FAERS Safety Report 9436697 (Version 4)
Quarter: 2013Q3

REPORT INFORMATION
  Report Type: Spontaneous
  Country: US (occurrence: US)
  Receive Date: 20130802
  Receipt Date: 20130830
  Transmission Date: 20140515
  Serious: Yes (Death, Hospitalization, Other)
  Sender: FDA-Public Use
  Company Number: US-JNJFOC-20130714754

PATIENT
  Age: 78 Year
  Sex: Female
  Weight: 68 kg

DRUGS (12)
  1. XARELTO [Suspect]
     Indication: CEREBROVASCULAR ACCIDENT PROPHYLAXIS
     Dosage: AT 09:00 AM
     Route: 048
     Dates: end: 20130714
  2. XARELTO [Suspect]
     Indication: ATRIAL FIBRILLATION
     Dosage: AT 09:00 AM
     Route: 048
     Dates: end: 20130714
  3. ASA [Suspect]
     Indication: PRODUCT USED FOR UNKNOWN INDICATION
     Route: 048
  4. ASA [Suspect]
     Indication: PRODUCT USED FOR UNKNOWN INDICATION
     Dosage: 21:14
     Route: 048
     Dates: start: 20130714
  5. LORAZEPAM [Concomitant]
     Dosage: AT 19:24
     Route: 042
     Dates: start: 20130714
  6. PRAVASTATIN [Concomitant]
     Route: 048
  7. CLONIDINE [Concomitant]
     Route: 048
  8. LASIX [Concomitant]
     Route: 048
  9. METFORMIN [Concomitant]
     Route: 048
  10. OMEPRAZOLE [Concomitant]
     Route: 048
  11. METHYLPREDNISOLONE [Concomitant]
     Dosage: AT 21:13
     Route: 042
     Dates: start: 20130714
  12. DIPHENHYDRAMINE [Concomitant]
     Dosage: AT 21:14
     Route: 042
     Dates: start: 20130714

REACTIONS (19)
  - Death [Fatal]
  - Disseminated intravascular coagulation [Not Recovered/Not Resolved]
  - Sepsis [Not Recovered/Not Resolved]
  - Haematuria [Not Recovered/Not Resolved]
  - Pneumonia [Not Recovered/Not Resolved]
  - Haemoglobin decreased [Not Recovered/Not Resolved]
  - Puncture site haemorrhage [Not Recovered/Not Resolved]
  - Pericardial effusion [Not Recovered/Not Resolved]
  - Pleural effusion [Not Recovered/Not Resolved]
  - Loss of consciousness [Not Recovered/Not Resolved]
  - Respiratory failure [Not Recovered/Not Resolved]
  - Hepatic failure [Not Recovered/Not Resolved]
  - Coagulopathy [Not Recovered/Not Resolved]
  - Renal failure acute [Not Recovered/Not Resolved]
  - Lactic acidosis [Not Recovered/Not Resolved]
  - Shock [Not Recovered/Not Resolved]
  - Arrhythmia [Not Recovered/Not Resolved]
  - Fall [Not Recovered/Not Resolved]
  - Inappropriate schedule of drug administration [Unknown]
